FAERS Safety Report 5060533-4 (Version None)
Quarter: 2006Q2

REPORT INFORMATION
  Report Type: 
  Country: None (occurrence: None)
  Receive Date: 20060630
  Receipt Date: 20060227
  Transmission Date: 20061013
  Serious: Yes (Life-Threatening)
  Sender: FDA-Public Use
  Company Number: VISP-PR-0603S-0108

PATIENT
  Sex: Male

DRUGS (3)
  1. VISIPAQUE [Suspect]
     Indication: PLEURAL EFFUSION
     Dosage: , SINGLE DOSE, I.V.
     Route: 042
     Dates: start: 20060219, end: 20060219
  2. VISIPAQUE [Suspect]
     Indication: PNEUMONIA
     Dosage: , SINGLE DOSE, I.V.
     Route: 042
     Dates: start: 20060219, end: 20060219
  3. METFORMIN HCL (GLUCOPHAGE) [Concomitant]

REACTIONS (1)
  - ANAPHYLACTOID REACTION [None]
